FAERS Safety Report 15012120 (Version 5)
Quarter: 2018Q3

REPORT INFORMATION
  Report Type: Spontaneous
  Country: PT (occurrence: PT)
  Receive Date: 20180614
  Receipt Date: 20180914
  Transmission Date: 20181010
  Serious: Yes (Other)
  Sender: FDA-Public Use
  Company Number: PT-MYLANLABS-2018M1039164

PATIENT
  Age: 52 Year
  Sex: Female

DRUGS (6)
  1. METFORMIN [Suspect]
     Active Substance: METFORMIN HYDROCHLORIDE
     Indication: MITOCHONDRIAL DNA MUTATION
     Dosage: 1700 MG, QD (850 MG, BID)
     Route: 065
  2. GLICLAZIDE [Suspect]
     Active Substance: GLICLAZIDE
     Indication: DIABETES MELLITUS
     Dosage: 60 MG, QD
     Route: 065
  3. GLICLAZIDE [Suspect]
     Active Substance: GLICLAZIDE
     Indication: MITOCHONDRIAL DNA MUTATION
     Dosage: UNK
  4. TRAJENTA [Suspect]
     Active Substance: LINAGLIPTIN
     Indication: MITOCHONDRIAL DNA MUTATION
     Dosage: 5 MG, QD
     Route: 065
  5. METFORMIN [Suspect]
     Active Substance: METFORMIN HYDROCHLORIDE
     Indication: DIABETES MELLITUS
     Dosage: UNK
  6. TRAJENTA [Suspect]
     Active Substance: LINAGLIPTIN
     Indication: DIABETES MELLITUS
     Dosage: UNK
     Route: 065

REACTIONS (5)
  - Hyperlactacidaemia [Recovered/Resolved]
  - Off label use [Unknown]
  - Asthenia [Unknown]
  - Myalgia [Unknown]
  - Drug ineffective [Recovered/Resolved]
